FAERS Safety Report 26218631 (Version 1)
Quarter: 2025Q4

REPORT INFORMATION
  Report Type: Spontaneous
  Country: US (occurrence: US)
  Receive Date: 20251231
  Receipt Date: 20251231
  Transmission Date: 20260117
  Serious: Yes (Death, Other)
  Sender: PURDUE
  Company Number: US-NAPPMUNDI-GBR-2025-0131721

PATIENT

DRUGS (1)
  1. METHYLPHENIDATE HYDROCHLORIDE [Suspect]
     Active Substance: METHYLPHENIDATE HYDROCHLORIDE
     Indication: Product used for unknown indication
     Dosage: UNK
     Route: 065

REACTIONS (6)
  - Acute myocardial infarction [Fatal]
  - Cerebrovascular accident [Fatal]
  - Transient ischaemic attack [Fatal]
  - Ventricular arrhythmia [Fatal]
  - Cardiovascular disorder [Fatal]
  - Cardiovascular disorder [Unknown]
